FAERS Safety Report 8625437-6 (Version None)
Quarter: 2012Q3

REPORT INFORMATION
  Report Type: 
  Country: None (occurrence: None)
  Receive Date: 20120827
  Receipt Date: 20120821
  Transmission Date: 20120928
  Serious: Yes (Death)
  Sender: FDA-Public Use
  Company Number: US-ACTELION-A-US2012-68477

PATIENT
  Age: 75 Year
  Sex: Female

DRUGS (5)
  1. TRACLEER [Suspect]
     Indication: PULMONARY ARTERIAL HYPERTENSION
     Dosage: UNK
     Route: 048
     Dates: end: 20120703
  2. TREPROSTINIL [Concomitant]
  3. OXYGEN [Concomitant]
  4. SILDENAFIL [Concomitant]
  5. WARFARIN SODIUM [Concomitant]

REACTIONS (3)
  - CARDIAC ARREST [None]
  - RIGHT VENTRICULAR FAILURE [None]
  - FALL [None]
